FAERS Safety Report 20818818 (Version 2)
Quarter: 2022Q2

REPORT INFORMATION
  Report Type: Spontaneous
  Country: US (occurrence: US)
  Receive Date: 20220512
  Receipt Date: 20220621
  Transmission Date: 20220721
  Serious: Yes (Other)
  Sender: FDA-Public Use
  Company Number: US-BAYER-2022A068165

PATIENT
  Age: 31 Year
  Sex: Female

DRUGS (2)
  1. MIRENA [Suspect]
     Active Substance: LEVONORGESTREL
     Indication: Intra-uterine contraceptive device insertion
     Dosage: 20?G/DAY
     Route: 015
     Dates: start: 20211105, end: 20220506
  2. MISO [Concomitant]

REACTIONS (4)
  - Genital haemorrhage [None]
  - Device dislocation [Recovered/Resolved]
  - Pelvic pain [None]
  - Coital bleeding [None]
